FAERS Safety Report 24468199 (Version 2)
Quarter: 2024Q4

REPORT INFORMATION
  Report Type: Spontaneous
  Country: US (occurrence: US)
  Receive Date: 20241018
  Receipt Date: 20241104
  Transmission Date: 20250115
  Serious: Yes (Death, Life-Threatening, Hospitalization)
  Sender: JOHNSON AND JOHNSON
  Company Number: US-JNJFOC-20241041625

PATIENT
  Age: 61 Year
  Sex: Male

DRUGS (1)
  1. CARVYKTI [Suspect]
     Active Substance: CILTACABTAGENE AUTOLEUCEL
     Indication: Plasma cell myeloma
     Route: 042
     Dates: start: 20240813

REACTIONS (7)
  - Death [Fatal]
  - Neurotoxicity [Not Recovered/Not Resolved]
  - Fall [Unknown]
  - Hypotension [Unknown]
  - Bell^s palsy [Not Recovered/Not Resolved]
  - Polyneuropathy [Unknown]
  - Cytokine release syndrome [Recovering/Resolving]

NARRATIVE: CASE EVENT DATE: 20240910
